FAERS Safety Report 7387899-4 (Version None)
Quarter: 2011Q2

REPORT INFORMATION
  Report Type: 
  Country: None (occurrence: None)
  Receive Date: 20110401
  Receipt Date: 20110325
  Transmission Date: 20111010
  Serious: Yes (Other)
  Sender: FDA-Public Use
  Company Number: AR-AMGEN-ARGSP2011011792

PATIENT
  Age: 68 Year
  Sex: Female
  Weight: 80 kg

DRUGS (3)
  1. ENBREL [Suspect]
     Dosage: UNK
     Dates: end: 20101101
  2. ENBREL [Suspect]
     Indication: RHEUMATOID ARTHRITIS
     Dosage: 50 MG, WEEKLY
     Route: 058
     Dates: start: 20090101, end: 20100401
  3. MONTELUKAST SODIUM [Concomitant]
     Dosage: UNK

REACTIONS (1)
  - HIP ARTHROPLASTY [None]
